FAERS Safety Report 6331511-X (Version None)
Quarter: 2009Q3

REPORT INFORMATION
  Report Type: 
  Country: None (occurrence: None)
  Receive Date: 20090827
  Receipt Date: 20090731
  Transmission Date: 20100115
  Serious: No
  Sender: FDA-Public Use
  Company Number: US-BAYER-200912795BCC

PATIENT
  Sex: Male
  Weight: 82 kg

DRUGS (6)
  1. MIDOL [Suspect]
     Indication: BACK PAIN
     Dosage: AS USED: UNK MG
  2. MIDOL LIQUID GELS [Suspect]
     Indication: BACK PAIN
     Route: 048
  3. MIDOL MENSTRUAL COMPLET [Suspect]
     Indication: BACK PAIN
     Dosage: AS USED: UNK DF
     Route: 048
  4. MIDOL PM CAPLETS [Suspect]
     Indication: BACK PAIN
     Route: 048
  5. ATENOLOL [Concomitant]
  6. LISINOPRIL [Concomitant]

REACTIONS (1)
  - BACK PAIN [None]
